FAERS Safety Report 8019078-1 (Version None)
Quarter: 2012Q1

REPORT INFORMATION
  Report Type: 
  Country: None (occurrence: None)
  Receive Date: 20120103
  Receipt Date: 20111222
  Transmission Date: 20120608
  Serious: Yes (Hospitalization, Other)
  Sender: FDA-Public Use
  Company Number: US-JNJFOC-20111201677

PATIENT
  Sex: Male
  Weight: 79.38 kg

DRUGS (12)
  1. RISPERDAL CONSTA [Suspect]
     Route: 030
     Dates: start: 20090101, end: 20100101
  2. RISPERDAL [Concomitant]
     Route: 048
  3. BUSPAR [Concomitant]
     Indication: SCHIZOAFFECTIVE DISORDER
     Route: 048
  4. HALDOL [Suspect]
     Indication: SCHIZOAFFECTIVE DISORDER
     Route: 030
     Dates: start: 20110101, end: 20110101
  5. RISPERDAL CONSTA [Suspect]
     Route: 030
     Dates: start: 20110901
  6. INVEGA SUSTENNA [Suspect]
     Indication: SCHIZOAFFECTIVE DISORDER
     Route: 030
     Dates: start: 20100101, end: 20110301
  7. CLOZARIL [Concomitant]
     Indication: TARDIVE DYSKINESIA
     Route: 048
  8. CLOZARIL [Concomitant]
     Indication: SCHIZOAFFECTIVE DISORDER
     Route: 048
  9. BUSPAR [Concomitant]
     Indication: ANXIETY
     Route: 048
  10. RISPERDAL CONSTA [Suspect]
     Indication: SCHIZOAFFECTIVE DISORDER
     Route: 030
     Dates: start: 20110101, end: 20110101
  11. RISPERDAL [Concomitant]
     Indication: SCHIZOAFFECTIVE DISORDER
     Route: 048
     Dates: start: 20070101, end: 20090101
  12. RISPERDAL CONSTA [Suspect]
     Route: 030
     Dates: start: 20110301, end: 20110901

REACTIONS (4)
  - SCHIZOAFFECTIVE DISORDER [None]
  - PSYCHOTIC DISORDER [None]
  - SELF INJURIOUS BEHAVIOUR [None]
  - DRUG INEFFECTIVE [None]
